FAERS Safety Report 21168931 (Version 4)
Quarter: 2023Q1

REPORT INFORMATION
  Report Type: Spontaneous
  Country: US (occurrence: US)
  Receive Date: 20220803
  Receipt Date: 20230309
  Transmission Date: 20230417
  Serious: Yes (Other)
  Sender: FDA-Public Use
  Company Number: US-GILEAD-2022-0592236

PATIENT
  Age: 55 Year
  Sex: Male

DRUGS (4)
  1. TRUVADA [Suspect]
     Active Substance: EMTRICITABINE\TENOFOVIR DISOPROXIL FUMARATE
     Indication: HIV infection
     Dosage: UNK
     Route: 048
     Dates: start: 20071227, end: 20141118
  2. CRIXIVAN [Concomitant]
     Active Substance: INDINAVIR SULFATE
  3. ZERIT [Concomitant]
     Active Substance: STAVUDINE
  4. NORVIR [Concomitant]
     Active Substance: RITONAVIR

REACTIONS (5)
  - Osteoarthritis [Unknown]
  - Bone density decreased [Unknown]
  - Arthritis [Not Recovered/Not Resolved]
  - Degenerative bone disease [Not Recovered/Not Resolved]
  - Chronic kidney disease [Not Recovered/Not Resolved]

NARRATIVE: CASE EVENT DATE: 20160926
